FAERS Safety Report 9165555 (Version 3)
Quarter: 2013Q3

REPORT INFORMATION
  Report Type: Report from Study
  Country: US (occurrence: US)
  Receive Date: 20130315
  Receipt Date: 20130826
  Transmission Date: 20140515
  Serious: No
  Sender: FDA-Public Use
  Company Number: PHEH2013US004252

PATIENT
  Age: 51 Year
  Sex: Female
  Weight: 97.96 kg

DRUGS (4)
  1. GILENYA [Suspect]
     Indication: MULTIPLE SCLEROSIS
     Dosage: 0.5 MG, QD
     Route: 048
     Dates: start: 20110201
  2. GILENYA [Suspect]
     Dosage: 0.5 MG, QD
     Route: 048
  3. BUPROPION [Concomitant]
     Dosage: 100 MG, BID
  4. ALPRAZOLAM [Concomitant]
     Indication: ANXIETY

REACTIONS (15)
  - Motor dysfunction [Recovered/Resolved]
  - Dysphagia [Recovered/Resolved]
  - Speech disorder [Unknown]
  - Coordination abnormal [Unknown]
  - Hyporeflexia [Unknown]
  - Memory impairment [Unknown]
  - Cognitive disorder [Unknown]
  - Aphasia [Unknown]
  - Tremor [Unknown]
  - Fatigue [Recovered/Resolved]
  - Depressed mood [Recovered/Resolved]
  - Vision blurred [Recovered/Resolved]
  - Concomitant disease aggravated [Not Recovered/Not Resolved]
  - Asthenia [Unknown]
  - Weight decreased [Unknown]
